FAERS Safety Report 5068162-3 (Version None)
Quarter: 2006Q3

REPORT INFORMATION
  Report Type: 
  Country: None (occurrence: None)
  Receive Date: 20060717
  Receipt Date: 20060228
  Transmission Date: 20061208
  Serious: Yes (Hospitalization)
  Sender: FDA-Public Use
  Company Number: 2006000474

PATIENT
  Age: 53 Year
  Sex: Female

DRUGS (8)
  1. TARCEVA [Suspect]
     Indication: METASTATIC RENAL CELL CARCINOMA
     Dosage: 150 MG (QD), ORAL
     Route: 048
     Dates: start: 20050930, end: 20051018
  2. AVASTIN [Suspect]
     Indication: METASTATIC RENAL CELL CARCINOMA
     Dosage: 5MG/KG (325 MG) (O2W),INTRAVENOUS
     Route: 042
     Dates: start: 20051001, end: 20051012
  3. GLUCOTROL [Concomitant]
  4. PACKED RED BLOOD CELLS(RED BLOOD CELLS, CONCENTRATED) [Concomitant]
  5. MAGNESIUM OXIDE (MAGNESIUM OXIDE) [Concomitant]
  6. KEFLEX [Concomitant]
  7. VANCOMYCIN [Concomitant]
  8. PROTONIX [Concomitant]

REACTIONS (2)
  - HAEMOPTYSIS [None]
  - RASH [None]
